FAERS Safety Report 17215916 (Version 1)
Quarter: 2019Q4

REPORT INFORMATION
  Report Type: Report from Study
  Country: GR (occurrence: GR)
  Receive Date: 20191230
  Receipt Date: 20191230
  Transmission Date: 20200122
  Serious: Yes (Hospitalization)
  Sender: FDA-Public Use
  Company Number: GR-MYLANLABS-2019M1129242

PATIENT
  Age: 86 Year
  Sex: Male

DRUGS (2)
  1. INSULIN GLARGINE [Suspect]
     Active Substance: INSULIN GLARGINE
     Indication: DIABETES MELLITUS
     Dosage: 22 U, QD
     Route: 058
     Dates: start: 20190808
  2. GLIMEPIRIDE. [Suspect]
     Active Substance: GLIMEPIRIDE
     Indication: DIABETES MELLITUS
     Dosage: 3 MG, BID
     Route: 048

REACTIONS (8)
  - Blood glucose decreased [Unknown]
  - Lack of injection site rotation [Unknown]
  - Intentional dose omission [Unknown]
  - Blood glucose increased [Unknown]
  - Jaundice [Unknown]
  - Intentional product misuse [Unknown]
  - Adenocarcinoma pancreas [Unknown]
  - Medication error [Unknown]

NARRATIVE: CASE EVENT DATE: 20190909
